FAERS Safety Report 9542252 (Version 1)
Quarter: 2013Q3

REPORT INFORMATION
  Report Type: Spontaneous
  Country: US (occurrence: US)
  Receive Date: 20130923
  Receipt Date: 20130923
  Transmission Date: 20140515
  Serious: Yes (Other)
  Sender: FDA-Public Use
  Company Number: US-PFIZER INC-2013269001

PATIENT
  Age: 67 Year
  Sex: Female
  Weight: 56.7 kg

DRUGS (4)
  1. LEVOTHYROXINE SODIUM [Suspect]
     Dosage: UNK
  2. LEVOXYL [Suspect]
     Dosage: UNK
  3. SYNTHROID [Suspect]
     Dosage: 50 MG, 1X/DAY (1 IN 1 D)
     Route: 048
     Dates: start: 2010
  4. ARMOUR THYROID [Suspect]
     Dosage: UNK

REACTIONS (7)
  - Sinus disorder [Recovered/Resolved]
  - Sinusitis [Recovered/Resolved]
  - Activities of daily living impaired [Unknown]
  - Asthenia [Unknown]
  - Headache [Recovered/Resolved]
  - Myalgia [Recovered/Resolved]
  - Cough [Recovered/Resolved]
